FAERS Safety Report 25129444 (Version 1)
Quarter: 2025Q1

REPORT INFORMATION
  Report Type: Spontaneous
  Country: US (occurrence: US)
  Receive Date: 20250327
  Receipt Date: 20250327
  Transmission Date: 20250408
  Serious: No
  Sender: ROCHE
  Company Number: US-ROCHE-10000237972

PATIENT
  Age: 43 Year
  Sex: Female
  Weight: 120.2 kg

DRUGS (7)
  1. XOLAIR [Suspect]
     Active Substance: OMALIZUMAB
     Indication: Urticaria
     Dosage: 300MG/2ML UNDER THE SKIN
     Route: 058
     Dates: start: 202409
  2. XOLAIR [Suspect]
     Active Substance: OMALIZUMAB
     Indication: Idiopathic urticaria
  3. CYCLOSPORINE [Concomitant]
     Active Substance: CYCLOSPORINE
     Indication: Urticaria
     Dates: start: 2024
  4. CYCLOSPORINE [Concomitant]
     Active Substance: CYCLOSPORINE
     Dosage: MORNING AFTER EATING, AND AT NIGHT
     Route: 048
     Dates: start: 2022, end: 2022
  5. ALLEGRA [Concomitant]
     Active Substance: FEXOFENADINE HYDROCHLORIDE
     Indication: Urticaria
     Route: 048
     Dates: start: 2024
  6. PEPCID [Concomitant]
     Active Substance: FAMOTIDINE
     Indication: Urticaria
     Dosage: MORNING AND NIGHT
     Route: 048
     Dates: start: 2024
  7. ZYRTEC [Concomitant]
     Active Substance: CETIRIZINE HYDROCHLORIDE
     Dosage: AT NIGHT

REACTIONS (4)
  - Product dose omission issue [Unknown]
  - Device issue [Unknown]
  - Accidental exposure to product [Unknown]
  - No adverse event [Unknown]

NARRATIVE: CASE EVENT DATE: 20250315
